FAERS Safety Report 4538953-3 (Version None)
Quarter: 2004Q4

REPORT INFORMATION
  Report Type: 
  Country: None (occurrence: None)
  Receive Date: 20041222
  Receipt Date: 20041207
  Transmission Date: 20050328
  Serious: Yes (Death)
  Sender: FDA-Public Use
  Company Number: USA041285584

PATIENT
  Age: 38 Year
  Sex: Male

DRUGS (3)
  1. ZYPREXA [Suspect]
     Dosage: 30 MG/1 DAY
  2. ZOLOFT [Concomitant]
  3. SEROQUEL [Concomitant]

REACTIONS (1)
  - OVERDOSE [None]
